FAERS Safety Report 14388234 (Version 2)
Quarter: 2018Q3

REPORT INFORMATION
  Report Type: Spontaneous
  Country: US (occurrence: US)
  Receive Date: 20180115
  Receipt Date: 20180929
  Transmission Date: 20181010
  Serious: Yes (Other)
  Sender: FDA-Public Use
  Company Number: US-SA-2017SA209764

PATIENT
  Age: 50 Year
  Sex: Female

DRUGS (4)
  1. TAXOTERE [Suspect]
     Active Substance: DOCETAXEL
     Indication: BREAST CANCER
     Dosage: 20 MG, QCY
     Route: 042
     Dates: start: 20080111, end: 20080111
  2. TAXOTERE [Suspect]
     Active Substance: DOCETAXEL
     Dosage: 20 MG, QCY
     Route: 042
     Dates: start: 20080425, end: 20080425
  3. DOXORUBICIN [Concomitant]
     Active Substance: DOXORUBICIN
  4. CYTOXAN [Concomitant]
     Active Substance: CYCLOPHOSPHAMIDE

REACTIONS (6)
  - Alopecia [Not Recovered/Not Resolved]
  - Anxiety [Unknown]
  - Impaired quality of life [Unknown]
  - Emotional distress [Unknown]
  - Pain [Unknown]
  - Psychological trauma [Unknown]

NARRATIVE: CASE EVENT DATE: 20080131
